FAERS Safety Report 10040718 (Version 1)
Quarter: 2014Q1

REPORT INFORMATION
  Report Type: Spontaneous
  Country: NL (occurrence: NL)
  Receive Date: 20140327
  Receipt Date: 20140327
  Transmission Date: 20141002
  Serious: Yes (Hospitalization)
  Sender: FDA-Public Use
  Company Number: NL-AMGEN-NLDSP2011070800

PATIENT
  Age: 34 Year
  Sex: Male

DRUGS (1)
  1. NEULASTA [Suspect]
     Indication: PROPHYLAXIS
     Dosage: 6 MG, 1X3W
     Route: 058
     Dates: start: 20110920

REACTIONS (1)
  - Investigation [Unknown]
